FAERS Safety Report 7458609-7 (Version None)
Quarter: 2011Q2

REPORT INFORMATION
  Report Type: 
  Country: None (occurrence: None)
  Receive Date: 20110503
  Receipt Date: 20110503
  Transmission Date: 20111010
  Serious: No
  Sender: FDA-Public Use
  Company Number: None

PATIENT
  Age: 66 Year
  Sex: Male
  Weight: 121.6 kg

DRUGS (1)
  1. ENOXAPARIN [Suspect]
     Indication: THROMBOSIS PROPHYLAXIS
     Dates: start: 20110315, end: 20110318

REACTIONS (2)
  - THROMBOCYTOPENIA [None]
  - ANAEMIA [None]
